FAERS Safety Report 8269473-0 (Version None)
Quarter: 2012Q2

REPORT INFORMATION
  Report Type: 
  Country: None (occurrence: None)
  Receive Date: 20120409
  Receipt Date: 20120329
  Transmission Date: 20120825
  Serious: Yes (Death)
  Sender: FDA-Public Use
  Company Number: JP-MERCK-1202USA02513

PATIENT
  Age: 48 Year
  Sex: Male
  Weight: 100 kg

DRUGS (6)
  1. CARVEDILOL [Suspect]
     Indication: CARDIAC FAILURE
     Route: 048
     Dates: start: 20111207
  2. COZAAR [Suspect]
     Indication: CARDIAC FAILURE
     Route: 048
     Dates: start: 20111207, end: 20120101
  3. DIGOXIN [Concomitant]
     Route: 048
     Dates: start: 20111207, end: 20111222
  4. WARFARIN [Concomitant]
     Indication: CARDIAC FAILURE
     Route: 048
     Dates: start: 20111222
  5. ALLOPURINOL [Concomitant]
     Route: 048
     Dates: start: 20111207, end: 20111222
  6. FUROSEMIDE [Suspect]
     Indication: CARDIAC FAILURE
     Route: 048
     Dates: start: 20111207

REACTIONS (1)
  - INTERSTITIAL LUNG DISEASE [None]
